FAERS Safety Report 19485675 (Version 1)
Quarter: 2021Q3

REPORT INFORMATION
  Report Type: Spontaneous
  Country: GB (occurrence: GB)
  Receive Date: 20210702
  Receipt Date: 20210702
  Transmission Date: 20211014
  Serious: Yes (Other)
  Sender: FDA-Public Use
  Company Number: GB-TEVA-2021-GB-1927545

PATIENT
  Age: 5 Year
  Sex: Male
  Weight: 19.02 kg

DRUGS (5)
  1. PREDNISOLONE. [Suspect]
     Active Substance: PREDNISOLONE
     Indication: ECZEMA
  2. CLOBAVATE [Suspect]
     Active Substance: CLOBETASONE BUTYRATE
     Indication: ILL-DEFINED DISORDER
     Dosage: APPLY A THIN LAYER TWICE DAILY
     Route: 061
     Dates: start: 20210225, end: 20210228
  3. CLOBAVATE [Suspect]
     Active Substance: CLOBETASONE BUTYRATE
     Indication: ECZEMA
  4. PREDNISOLONE. [Suspect]
     Active Substance: PREDNISOLONE
     Indication: ILL-DEFINED DISORDER
     Dosage: 3 TABLETS TAPERED DOWN EVERY 5 DAYS TO HALF A TABLET 20DAYS IN TOTAL
     Route: 048
  5. CETIRIZINE [Concomitant]
     Active Substance: CETIRIZINE HYDROCHLORIDE
     Indication: ILL-DEFINED DISORDER

REACTIONS (8)
  - Urticaria [Recovered/Resolved with Sequelae]
  - Adverse drug reaction [Recovering/Resolving]
  - Medication error [Unknown]
  - Adverse drug reaction [Not Recovered/Not Resolved]
  - Adverse drug reaction [Recovering/Resolving]
  - Adverse drug reaction [Not Recovered/Not Resolved]
  - Rash [Recovered/Resolved]
  - Adverse drug reaction [Recovering/Resolving]

NARRATIVE: CASE EVENT DATE: 20210225
